FAERS Safety Report 6414199-9 (Version None)
Quarter: 2009Q4

REPORT INFORMATION
  Report Type: 
  Country: None (occurrence: None)
  Receive Date: 20091026
  Receipt Date: 20091014
  Transmission Date: 20100525
  Serious: Yes (Hospitalization, Other)
  Sender: FDA-Public Use
  Company Number: JP-PFIZER INC-2009267323

PATIENT
  Age: 66 Year

DRUGS (7)
  1. ZITHROMAC SR [Suspect]
     Indication: INFECTION
     Dosage: 2 G, SINGLE
     Route: 048
     Dates: start: 20090903, end: 20090903
  2. CRAVIT [Suspect]
     Indication: INFECTION
     Dosage: 500 MG, 1X/DAY
     Route: 048
     Dates: start: 20090903, end: 20090907
  3. MINOCYCLINE HCL [Concomitant]
     Dosage: UNK
     Route: 048
     Dates: start: 20070101
  4. THEOPHYLLINE [Concomitant]
     Dosage: UNK
     Route: 048
     Dates: start: 20070101
  5. ACETYLCYSTEINE [Concomitant]
     Dosage: UNK
     Route: 055
     Dates: start: 20090206
  6. SOL-MELCORT [Concomitant]
     Route: 042
     Dates: start: 20090903, end: 20090903
  7. ULTIVA [Concomitant]
     Route: 042
     Dates: start: 20090903, end: 20090903

REACTIONS (2)
  - INTERSTITIAL LUNG DISEASE [None]
  - LIVER DISORDER [None]
